FAERS Safety Report 7838358-3 (Version None)
Quarter: 2011Q4

REPORT INFORMATION
  Report Type: 
  Country: None (occurrence: None)
  Receive Date: 20111024
  Receipt Date: 20111012
  Transmission Date: 20120403
  Serious: Yes (Other)
  Sender: FDA-Public Use
  Company Number: GB-BAUSCH-2011BL006973

PATIENT

DRUGS (5)
  1. PREDNISOLONE [Suspect]
     Indication: LANGERHANS' CELL HISTIOCYTOSIS
     Route: 065
  2. ETOPOSIDE [Suspect]
     Indication: LANGERHANS' CELL HISTIOCYTOSIS
     Route: 065
  3. CLADRIBINE [Suspect]
     Indication: LANGERHANS' CELL HISTIOCYTOSIS
     Route: 065
  4. VINBLASTINE SULFATE [Suspect]
     Indication: LANGERHANS' CELL HISTIOCYTOSIS
     Route: 065
  5. CYTARABINE [Suspect]
     Indication: LANGERHANS' CELL HISTIOCYTOSIS
     Route: 065

REACTIONS (2)
  - PANCYTOPENIA [None]
  - SEPSIS [None]
